FAERS Safety Report 9364808 (Version 2)
Quarter: 2013Q3

REPORT INFORMATION
  Report Type: Spontaneous
  Country: US (occurrence: US)
  Receive Date: 20130624
  Receipt Date: 20130926
  Transmission Date: 20140515
  Serious: Yes (Hospitalization)
  Sender: FDA-Public Use
  Company Number: US-ELI_LILLY_AND_COMPANY-US201306003607

PATIENT
  Age: 62 Year
  Sex: Female
  Weight: 61.22 kg

DRUGS (8)
  1. HUMALOG LISPRO [Suspect]
     Indication: TYPE 2 DIABETES MELLITUS
     Dosage: 10 U, TID
  2. HUMALOG LISPRO [Suspect]
     Dosage: 10 U, TID
  3. LEVEMIR [Concomitant]
     Dosage: 30 U, EACH EVENING
  4. DIAZEPAM [Concomitant]
     Dosage: 5 MG, BID
  5. FUROSEMIDE [Concomitant]
     Dosage: 20 MG, BID
  6. SIMVASTATIN [Concomitant]
     Dosage: 40 MG, EACH EVENING
  7. CARVEDILOL [Concomitant]
     Dosage: 25 MG, BID
  8. LORATADINE [Concomitant]
     Indication: SEASONAL ALLERGY
     Dosage: 10 MG, PRN

REACTIONS (4)
  - Chest discomfort [Recovered/Resolved]
  - Blood glucose increased [Unknown]
  - Incorrect dose administered [Unknown]
  - Eye disorder [Unknown]
